FAERS Safety Report 15115328 (Version 1)
Quarter: 2018Q3

REPORT INFORMATION
  Report Type: Spontaneous
  Country: US (occurrence: US)
  Receive Date: 20180706
  Receipt Date: 20180706
  Transmission Date: 20181010
  Serious: Yes (Hospitalization)
  Sender: FDA-Public Use
  Company Number: US-BEH-2018092454

PATIENT
  Age: 37 Year
  Sex: Female
  Weight: 58.96 kg

DRUGS (38)
  1. NALTREXONE [Concomitant]
     Active Substance: NALTREXONE
     Route: 065
  2. BACLOFEN. [Concomitant]
     Active Substance: BACLOFEN
  3. DOXYCYCLINE. [Concomitant]
     Active Substance: DOXYCYCLINE
  4. ESTRADIOL. [Concomitant]
     Active Substance: ESTRADIOL
  5. LIDOCAINE/PRILOCAINE [Concomitant]
     Active Substance: LIDOCAINE\PRILOCAINE
  6. ZOFRAN [Concomitant]
     Active Substance: ONDANSETRON HYDROCHLORIDE
  7. FLORASTOR [Concomitant]
     Active Substance: SACCHAROMYCES CEREVISIAE
  8. LIDOCAINE. [Concomitant]
     Active Substance: LIDOCAINE
  9. POTASSIUM CHLORIDE. [Concomitant]
     Active Substance: POTASSIUM CHLORIDE
  10. AMBIEN [Concomitant]
     Active Substance: ZOLPIDEM TARTRATE
  11. DHEA [Concomitant]
     Active Substance: PRASTERONE
  12. HIZENTRA [Suspect]
     Active Substance: HUMAN IMMUNOGLOBULIN G
     Dosage: UNK
     Route: 058
  13. FLORANEX [Concomitant]
     Active Substance: LACTOBACILLUS ACIDOPHILUS\LACTOBACILLUS DELBRUECKII SUBSP. BULGARICUS
     Route: 065
  14. CELEBREX [Concomitant]
     Active Substance: CELECOXIB
  15. GLUTATHIONE [Concomitant]
     Active Substance: GLUTATHIONE
  16. NATURE?THROID [Concomitant]
     Active Substance: THYROID, PORCINE
  17. BUDESONIDE. [Concomitant]
     Active Substance: BUDESONIDE
  18. HIZENTRA [Suspect]
     Active Substance: HUMAN IMMUNOGLOBULIN G
     Indication: HUMORAL IMMUNE DEFECT
     Route: 058
  19. HIZENTRA [Suspect]
     Active Substance: HUMAN IMMUNOGLOBULIN G
     Dosage: 7 G, QW(OVER 2 DAYS)
     Route: 058
     Dates: start: 20140410
  20. ACETAMINOPHEN. [Concomitant]
     Active Substance: ACETAMINOPHEN
  21. METHOCARBAMOL. [Concomitant]
     Active Substance: METHOCARBAMOL
  22. IMODIUM [Concomitant]
     Active Substance: LOPERAMIDE HYDROCHLORIDE
  23. DICYCLOMINE                        /00068601/ [Concomitant]
     Active Substance: DICYCLOMINE HYDROCHLORIDE
  24. SELENIUM [Concomitant]
     Active Substance: SELENIUM
  25. PERCOCET                           /00446701/ [Concomitant]
     Active Substance: ACETAMINOPHEN\OXYCODONE HYDROCHLORIDE\OXYCODONE TEREPHTHALATE
  26. HIZENTRA [Suspect]
     Active Substance: HUMAN IMMUNOGLOBULIN G
     Indication: SELECTIVE IGG SUBCLASS DEFICIENCY
     Dosage: UNK
     Route: 058
  27. PROPRANOLOL [Concomitant]
     Active Substance: PROPRANOLOL HYDROCHLORIDE
     Route: 065
  28. LOVENOX [Concomitant]
     Active Substance: ENOXAPARIN SODIUM
  29. TRAMADOL. [Concomitant]
     Active Substance: TRAMADOL
  30. PROMETHAZINE [Concomitant]
     Active Substance: PROMETHAZINE\PROMETHAZINE HYDROCHLORIDE
  31. VITAMIN D                          /00107901/ [Concomitant]
     Active Substance: ERGOCALCIFEROL
  32. ALPHA LIPOIC ACID [Concomitant]
     Active Substance: .ALPHA.-LIPOIC ACID
  33. MAGNESIUM CHLORIDE. [Concomitant]
     Active Substance: MAGNESIUM CHLORIDE
  34. MUPIROCIN. [Concomitant]
     Active Substance: MUPIROCIN
  35. DIPHENHYDRAMINE. [Concomitant]
     Active Substance: DIPHENHYDRAMINE
  36. EPINEPHRINE. [Concomitant]
     Active Substance: EPINEPHRINE
  37. FLUDROCORTISONE [Concomitant]
     Active Substance: FLUDROCORTISONE
  38. SKELAXIN [Concomitant]
     Active Substance: METAXALONE

REACTIONS (1)
  - Surgery [Recovered/Resolved]

NARRATIVE: CASE EVENT DATE: 20180608
